FAERS Safety Report 8827720 (Version 2)
Quarter: 2012Q4

REPORT INFORMATION
  Report Type: 
  Country: US (occurrence: US)
  Receive Date: 20121008
  Receipt Date: 20121130
  Transmission Date: 20130627
  Serious: Yes (Hospitalization)
  Sender: FDA-Public Use
  Company Number: US-PFIZER INC-2012246369

PATIENT
  Age: 46 Year
  Sex: Male
  Weight: 150 kg

DRUGS (2)
  1. ZOLOFT [Suspect]
     Indication: DEPRESSION
     Dosage: 10 mg, 2x/day
     Route: 048
     Dates: start: 2004
  2. ZYPREXA [Suspect]
     Dosage: UNK
     Route: 048

REACTIONS (4)
  - Suicide attempt [Unknown]
  - Mania [Recovered/Resolved]
  - Inappropriate affect [Recovered/Resolved]
  - Drug intolerance [Unknown]
